FAERS Safety Report 6982968-2 (Version None)
Quarter: 2010Q3

REPORT INFORMATION
  Report Type: 
  Country: None (occurrence: None)
  Receive Date: 20100914
  Receipt Date: 20100520
  Transmission Date: 20110219
  Serious: Yes (Other)
  Sender: FDA-Public Use
  Company Number: US-PFIZER INC-2010063818

PATIENT
  Sex: Female

DRUGS (5)
  1. LYRICA [Suspect]
     Indication: SCIATICA
     Dosage: 50 MG, 2X/DAY
     Route: 048
     Dates: start: 20100423, end: 20100501
  2. TOPAMAX [Concomitant]
     Indication: MIGRAINE
     Dosage: 100 MG, 1X/DAY
     Route: 048
  3. MAXALT [Concomitant]
     Indication: MIGRAINE
     Dosage: 10 MG, AS NEEDED
     Route: 048
  4. TRAMADOL [Concomitant]
     Indication: PAIN
     Dosage: 50 MG, UNK
     Route: 048
  5. HYDROCHLOROTHIAZIDE [Concomitant]
     Indication: BLOOD PRESSURE INCREASED
     Dosage: 12.5 MG, UNK
     Route: 048

REACTIONS (3)
  - EAR PAIN [None]
  - FACIAL PAIN [None]
  - LYMPHADENOPATHY [None]
